FAERS Safety Report 13873216 (Version 1)
Quarter: 2017Q3

REPORT INFORMATION
  Report Type: Spontaneous
  Country: US (occurrence: US)
  Receive Date: 20170816
  Receipt Date: 20170816
  Transmission Date: 20171127
  Serious: No
  Sender: FDA-Public Use
  Company Number: US-PRESTIGE BRANDS -2024698

PATIENT
  Sex: Female

DRUGS (1)
  1. TAGAMET [Suspect]
     Active Substance: CIMETIDINE
     Indication: DYSPEPSIA
     Route: 048
     Dates: start: 20161017, end: 20161020

REACTIONS (1)
  - Vaginal haemorrhage [Unknown]
